FAERS Safety Report 6458439-9 (Version None)
Quarter: 2009Q4

REPORT INFORMATION
  Report Type: 
  Country: None (occurrence: None)
  Receive Date: 20091126
  Receipt Date: 20091119
  Transmission Date: 20100525
  Serious: Yes (Other)
  Sender: FDA-Public Use
  Company Number: US-ASTRAZENECA-2006UW08479

PATIENT
  Age: 558 Month
  Sex: Female
  Weight: 93 kg

DRUGS (26)
  1. SEROQUEL [Suspect]
     Indication: BIPOLAR DISORDER
     Route: 048
     Dates: start: 20000317
  2. SEROQUEL [Suspect]
     Indication: DEPRESSION
     Route: 048
     Dates: start: 20000317
  3. SEROQUEL [Suspect]
     Dosage: 100 MG - 600 MG
     Route: 048
     Dates: start: 20000525
  4. SEROQUEL [Suspect]
     Dosage: 100 MG - 600 MG
     Route: 048
     Dates: start: 20000525
  5. BUSPIRONE HCL [Concomitant]
  6. TRILEPTAL [Concomitant]
  7. CITULOPRCES [Concomitant]
     Dates: start: 20030101
  8. BUSPAR [Concomitant]
     Dosage: 10 MG - 60 MG
     Route: 048
     Dates: start: 20000304
  9. CELEXA [Concomitant]
     Dosage: 20 MG - 40 MG
     Route: 048
     Dates: start: 20000920
  10. GLUCOVANCE [Concomitant]
     Dosage: 1.25 / 250, DAILY
     Route: 048
     Dates: start: 20000920
  11. KLONOPIN [Concomitant]
     Route: 048
     Dates: start: 20000913
  12. WELLBUTRIN SR [Concomitant]
     Dosage: 100 MG - 200 MG
     Route: 048
     Dates: start: 20000920
  13. DILTIAZEM HYDROCHLORIDE [Concomitant]
     Route: 048
     Dates: start: 20050303
  14. TRAZODONE HCL [Concomitant]
     Dosage: 50 MG - 150 MG
     Route: 048
     Dates: start: 20000317
  15. TRILEPTAL [Concomitant]
     Dosage: 300 MG - 1200 MG
     Route: 048
     Dates: start: 20030513
  16. TOPAMAX [Concomitant]
     Dosage: 25 MG - 50 MG
     Route: 048
     Dates: start: 20040728
  17. DEPAKOTE [Concomitant]
     Dosage: 250 MG - 500 MG
     Route: 048
     Dates: start: 20000920
  18. EFFEXOR XR [Concomitant]
     Dosage: 37.5 MG - 75 MG
     Route: 048
     Dates: start: 20000712
  19. AMBIEN [Concomitant]
     Route: 048
     Dates: start: 20000809
  20. PROZAC [Concomitant]
     Route: 048
     Dates: start: 20000304
  21. GLUCOPHAGE [Concomitant]
     Route: 048
     Dates: start: 20000513
  22. GLUCOTROL XL [Concomitant]
     Route: 048
     Dates: start: 20000519
  23. AVALIDE [Concomitant]
     Dosage: 12.5 MG - 150 MG
     Route: 048
     Dates: start: 20050303
  24. ACTOS [Concomitant]
     Route: 048
     Dates: start: 20060301
  25. HYDROCHLOROTHIAZIDE [Concomitant]
     Route: 048
     Dates: start: 20030513
  26. LIPITOR [Concomitant]
     Route: 048
     Dates: start: 20070807

REACTIONS (4)
  - DIABETES MELLITUS [None]
  - DIABETIC EYE DISEASE [None]
  - TYPE 1 DIABETES MELLITUS [None]
  - TYPE 2 DIABETES MELLITUS [None]
